FAERS Safety Report 6004435-5 (Version None)
Quarter: 2008Q4

REPORT INFORMATION
  Report Type: 
  Country: None (occurrence: None)
  Receive Date: 20081216
  Receipt Date: 20081211
  Transmission Date: 20090506
  Serious: Yes (Other)
  Sender: FDA-Public Use
  Company Number: GB-MERCK-0812GBR00059

PATIENT
  Age: 89 Year
  Sex: Male

DRUGS (1)
  1. FOSAMAX [Suspect]
     Route: 048

REACTIONS (2)
  - BLINDNESS UNILATERAL [None]
  - OFF LABEL USE [None]
